FAERS Safety Report 11771955 (Version 2)
Quarter: 2015Q4

REPORT INFORMATION
  Report Type: Spontaneous
  Country: IT (occurrence: IT)
  Receive Date: 20151124
  Receipt Date: 20151125
  Transmission Date: 20160304
  Serious: Yes (Hospitalization)
  Sender: FDA-Public Use
  Company Number: IT-ROCHE-1665009

PATIENT
  Age: 40 Year
  Sex: Female

DRUGS (2)
  1. VISMODEGIB [Suspect]
     Active Substance: VISMODEGIB
     Route: 048
     Dates: start: 20140127, end: 20150223
  2. VISMODEGIB [Suspect]
     Active Substance: VISMODEGIB
     Indication: BASAL CELL CARCINOMA
     Route: 048
     Dates: start: 20130520, end: 20131202

REACTIONS (15)
  - Renal colic [Unknown]
  - Asthenia [Unknown]
  - Erythema [Recovering/Resolving]
  - Hypertonic bladder [Unknown]
  - Amenorrhoea [Unknown]
  - Dysentery [Recovered/Resolved]
  - Muscle spasms [Unknown]
  - Rhinorrhoea [Recovered/Resolved]
  - Pruritus [Recovering/Resolving]
  - Muscle spasms [Unknown]
  - Alopecia [Unknown]
  - Varicella [Recovered/Resolved]
  - Hypotonic urinary bladder [Unknown]
  - Actinic keratosis [Unknown]
  - Incontinence [Unknown]

NARRATIVE: CASE EVENT DATE: 20130625
